FAERS Safety Report 12901504 (Version 2)
Quarter: 2017Q1

REPORT INFORMATION
  Report Type: Report from Study
  Country: US (occurrence: US)
  Receive Date: 20161102
  Receipt Date: 20170309
  Transmission Date: 20170428
  Serious: No
  Sender: FDA-Public Use
  Company Number: US-TAIHO ONCOLOGY INC-EU-2016-02829

PATIENT
  Age: 34 Year
  Sex: Female
  Weight: 77.18 kg

DRUGS (6)
  1. IBUPROFEN. [Concomitant]
     Active Substance: IBUPROFEN
     Indication: PAIN
     Dosage: NI
  2. LONSURF [Suspect]
     Active Substance: TIPIRACIL HYDROCHLORIDE\TRIFLURIDINE
     Indication: RECTAL CANCER
     Route: 048
     Dates: start: 20160826, end: 20161021
  3. METHADONE [Suspect]
     Active Substance: METHADONE HYDROCHLORIDE
     Indication: NEURALGIA
     Dates: start: 201607
  4. LEXAPRO [Concomitant]
     Active Substance: ESCITALOPRAM OXALATE
     Indication: ANTIDEPRESSANT THERAPY
     Dates: start: 201405
  5. DILAUDID [Suspect]
     Active Substance: HYDROMORPHONE HYDROCHLORIDE
     Indication: PAIN
     Dates: start: 201501
  6. LONSURF [Suspect]
     Active Substance: TIPIRACIL HYDROCHLORIDE\TRIFLURIDINE
     Indication: COLORECTAL CANCER
     Route: 048
     Dates: start: 20160826, end: 20161021

REACTIONS (12)
  - Fatigue [Recovering/Resolving]
  - Nausea [Recovering/Resolving]
  - Activities of daily living impaired [Recovering/Resolving]
  - Hypersomnia [Recovering/Resolving]
  - Decreased appetite [Recovering/Resolving]
  - Disease progression [Recovering/Resolving]
  - Retching [Recovering/Resolving]
  - Dizziness [Recovering/Resolving]
  - Dysphagia [Recovering/Resolving]
  - Asthenia [Recovering/Resolving]
  - Lethargy [Recovering/Resolving]
  - Neutropenia [Recovering/Resolving]

NARRATIVE: CASE EVENT DATE: 201608
